FAERS Safety Report 20019168 (Version 3)
Quarter: 2021Q4

REPORT INFORMATION
  Report Type: Spontaneous
  Country: TH (occurrence: TH)
  Receive Date: 20211101
  Receipt Date: 20211213
  Transmission Date: 20220304
  Serious: Yes (Hospitalization, Other)
  Sender: FDA-Public Use
  Company Number: TH-Accord-244026

PATIENT
  Age: 39 Year
  Sex: Male
  Weight: 58 kg

DRUGS (14)
  1. MYCOPHENOLIC ACID [Suspect]
     Active Substance: MYCOPHENOLIC ACID
     Indication: Immunosuppression
     Dosage: 360 MG/DAY
  2. TACROLIMUS [Interacting]
     Active Substance: TACROLIMUS
     Indication: Immunosuppression
     Dosage: 1 MG/DAY
     Route: 048
     Dates: start: 20200407, end: 202004
  3. LOPINAVIR\RITONAVIR [Interacting]
     Active Substance: LOPINAVIR\RITONAVIR
     Indication: COVID-19
     Dosage: 800/200 MG/DAY
     Route: 048
     Dates: start: 20200408, end: 20200418
  4. ENALAPRIL [Suspect]
     Active Substance: ENALAPRIL
     Indication: Product used for unknown indication
     Route: 048
     Dates: start: 2015, end: 20200408
  5. ENALAPRIL [Concomitant]
     Active Substance: ENALAPRIL
  6. HYDROXYCHLOROQUINE [Concomitant]
     Active Substance: HYDROXYCHLOROQUINE
     Indication: COVID-19
     Dosage: 800 MG/DAY
     Dates: start: 20200408, end: 202004
  7. FAVIPIRAVIR [Concomitant]
     Active Substance: FAVIPIRAVIR
     Indication: COVID-19
     Dosage: 1400 MG/DAY
     Dates: start: 20200408, end: 202004
  8. PREDNISOLONE [Concomitant]
     Active Substance: PREDNISOLONE
     Indication: Immunosuppression
     Dosage: 15 MG/DAY , 5 MG/DAY
     Dates: start: 202004, end: 202004
  9. LAMIVUDINE [Concomitant]
     Active Substance: LAMIVUDINE
     Indication: Hepatitis B
     Dates: start: 202004
  10. DILTIAZEM [Concomitant]
     Active Substance: DILTIAZEM
     Dates: start: 20200430
  11. SIMVASTATIN [Concomitant]
     Active Substance: SIMVASTATIN
     Dates: start: 20200430
  12. AZITHROMYCIN [Concomitant]
     Active Substance: AZITHROMYCIN
     Dosage: 250 MG/DAY
     Dates: start: 20200408
  13. MEROPENEM [Concomitant]
     Active Substance: MEROPENEM
     Dosage: 1 G/DAY, 500 MG/DAY
  14. OXYGEN [Concomitant]
     Active Substance: OXYGEN
     Indication: COVID-19
     Route: 045
     Dates: start: 202004

REACTIONS (4)
  - Acute kidney injury [Recovered/Resolved]
  - Drug interaction [Unknown]
  - Drug level increased [Unknown]
  - COVID-19 pneumonia [Recovered/Resolved]

NARRATIVE: CASE EVENT DATE: 20200410
